FAERS Safety Report 20481300 (Version 3)
Quarter: 2022Q1

REPORT INFORMATION
  Report Type: Spontaneous
  Country: IT (occurrence: IT)
  Receive Date: 20220216
  Receipt Date: 20220319
  Transmission Date: 20220424
  Serious: Yes (Other)
  Sender: FDA-Public Use
  Company Number: IT-NOVARTISPH-NVSC2022IT026956

PATIENT
  Age: 71 Year
  Sex: Female

DRUGS (2)
  1. BROLUCIZUMAB [Suspect]
     Active Substance: BROLUCIZUMAB
     Indication: Age-related macular degeneration
     Dosage: 6 MG, QMO
     Route: 047
     Dates: start: 20211116
  2. BROLUCIZUMAB [Suspect]
     Active Substance: BROLUCIZUMAB
     Dosage: 6 MG
     Route: 047
     Dates: start: 20211216

REACTIONS (5)
  - Vitritis [Recovered/Resolved]
  - Retinal infiltrates [Unknown]
  - Age-related macular degeneration [Unknown]
  - Eye inflammation [Recovered/Resolved]
  - Vitreous floaters [Unknown]

NARRATIVE: CASE EVENT DATE: 20220111
